FAERS Safety Report 9601994 (Version 2)
Quarter: 2013Q4

REPORT INFORMATION
  Report Type: Spontaneous
  Country: CO (occurrence: CO)
  Receive Date: 20131007
  Receipt Date: 20131010
  Transmission Date: 20140711
  Serious: Yes (Death, Hospitalization)
  Sender: FDA-Public Use
  Company Number: PHHY2013CO109928

PATIENT
  Age: 68 Year
  Sex: Female

DRUGS (2)
  1. SANDOSTATINA LAR [Suspect]
     Dosage: 30 MG, UNK
     Route: 030
     Dates: start: 20130103, end: 20130320
  2. AFINITOR [Suspect]
     Dosage: 5 MG, BID
     Dates: start: 20130731, end: 20130924

REACTIONS (3)
  - Pneumonia bacterial [Fatal]
  - Oxygen saturation decreased [Fatal]
  - Cough [Fatal]
